FAERS Safety Report 7764773-2 (Version None)
Quarter: 2011Q3

REPORT INFORMATION
  Report Type: 
  Country: None (occurrence: None)
  Receive Date: 20110921
  Receipt Date: 20110921
  Transmission Date: 20111222
  Serious: Yes (Life-Threatening, Hospitalization)
  Sender: FDA-Public Use
  Company Number: None

PATIENT
  Age: 30 Year
  Sex: Male

DRUGS (1)
  1. VANCOMYCIN [Suspect]
     Indication: STAPHYLOCOCCAL INFECTION
     Dosage: 1GM
     Route: 042
     Dates: start: 20110908, end: 20110908

REACTIONS (4)
  - SYNCOPE [None]
  - ERYTHEMA [None]
  - PULSE ABSENT [None]
  - DYSPNOEA [None]
